FAERS Safety Report 18326941 (Version 1)
Quarter: 2020Q3

REPORT INFORMATION
  Report Type: Spontaneous
  Country: US (occurrence: US)
  Receive Date: 20200929
  Receipt Date: 20200929
  Transmission Date: 20201103
  Serious: No
  Sender: FDA-Public Use
  Company Number: US-JNJFOC-20200948327

PATIENT
  Age: 16 Year
  Sex: Female

DRUGS (2)
  1. STELARA [Suspect]
     Active Substance: USTEKINUMAB
  2. STELARA [Suspect]
     Active Substance: USTEKINUMAB
     Indication: CROHN^S DISEASE
     Route: 058

REACTIONS (5)
  - Pain [Unknown]
  - Product use issue [Unknown]
  - Product dose omission issue [Unknown]
  - Off label use [Unknown]
  - Syringe issue [Unknown]

NARRATIVE: CASE EVENT DATE: 20200918
